FAERS Safety Report 24347830 (Version 1)
Quarter: 2024Q3

REPORT INFORMATION
  Report Type: Spontaneous
  Country: IN (occurrence: None)
  Receive Date: 20240922
  Receipt Date: 20240922
  Transmission Date: 20241017
  Serious: Yes (Other)
  Sender: UNICHEM
  Company Number: IN-Unichem Pharmaceuticals (USA) Inc-UCM202409-001163

PATIENT
  Age: 14 Year
  Sex: Male

DRUGS (7)
  1. DIVALPROEX SODIUM [Suspect]
     Active Substance: DIVALPROEX SODIUM
     Indication: Mania
     Route: 065
  2. DIVALPROEX SODIUM [Suspect]
     Active Substance: DIVALPROEX SODIUM
     Indication: Psychotic symptom
  3. CARBAMAZEPINE [Suspect]
     Active Substance: CARBAMAZEPINE
     Indication: Focal dyscognitive seizures
     Route: 065
  4. HALOPERIDOL [Suspect]
     Active Substance: HALOPERIDOL
     Indication: Mania
  5. HALOPERIDOL [Suspect]
     Active Substance: HALOPERIDOL
     Indication: Psychotic symptom
  6. Atomoxetine/Fluoxetine/Risperidone [Concomitant]
     Indication: Attention deficit hyperactivity disorder
     Dosage: ATOMOXETINE (20 MG)/FLUOXETINE (20 MG)/ RISPERIDONE (2 MG)
  7. Atomoxetine/Fluoxetine/Risperidone [Concomitant]
     Indication: Obsessive-compulsive symptom

REACTIONS (2)
  - Tourette^s disorder [Recovered/Resolved]
  - Stevens-Johnson syndrome [Unknown]
